FAERS Safety Report 6087366-4 (Version None)
Quarter: 2009Q1

REPORT INFORMATION
  Report Type: 
  Country: None (occurrence: None)
  Receive Date: 20090223
  Receipt Date: 20090217
  Transmission Date: 20090719
  Serious: Yes (Other)
  Sender: FDA-Public Use
  Company Number: B0559811A

PATIENT
  Age: 3 Year
  Sex: Female

DRUGS (2)
  1. CLAVAMOX [Suspect]
     Indication: OTITIS MEDIA
     Route: 048
     Dates: start: 20090201
  2. UNKNOWN DRUG [Concomitant]
     Route: 065

REACTIONS (1)
  - RASH [None]
